FAERS Safety Report 8622027-6 (Version None)
Quarter: 2012Q3

REPORT INFORMATION
  Report Type: 
  Country: None (occurrence: None)
  Receive Date: 20120823
  Receipt Date: 20120823
  Transmission Date: 20120928
  Serious: Yes (Disabling)
  Sender: FDA-Public Use
  Company Number: None

PATIENT
  Sex: Male
  Weight: 35.3806 kg

DRUGS (2)
  1. AMPHETAMINE SULFATE [Suspect]
     Indication: ATTENTION DEFICIT/HYPERACTIVITY DISORDER
     Dosage: 1.25 1 PO
     Route: 048
     Dates: start: 20120815, end: 20120817
  2. ADDERALL [Concomitant]

REACTIONS (1)
  - TIC [None]
